FAERS Safety Report 13415456 (Version 1)
Quarter: 2017Q2

REPORT INFORMATION
  Report Type: Spontaneous
  Country: US (occurrence: US)
  Receive Date: 20170406
  Receipt Date: 20170406
  Transmission Date: 20170830
  Serious: No
  Sender: FDA-Public Use
  Company Number: US-BAYER-2017-066083

PATIENT
  Age: 61 Year
  Sex: Male
  Weight: 71.97 kg

DRUGS (5)
  1. AMLODIPINE [Concomitant]
     Active Substance: AMLODIPINE BESYLATE
  2. ROTIGOTINE [Concomitant]
     Active Substance: ROTIGOTINE
  3. MIRALAX [Suspect]
     Active Substance: POLYETHYLENE GLYCOL 3350
     Indication: COLONOSCOPY
     Dosage: UNK
     Route: 048
     Dates: start: 20170405, end: 20170405
  4. ATENOLOL. [Concomitant]
     Active Substance: ATENOLOL
  5. RASAGILINE. [Concomitant]
     Active Substance: RASAGILINE

REACTIONS (4)
  - Wrong technique in product usage process [None]
  - Off label use [Unknown]
  - Product use in unapproved indication [Unknown]
  - Product use issue [None]

NARRATIVE: CASE EVENT DATE: 20170405
